FAERS Safety Report 21227762 (Version 7)
Quarter: 2025Q3

REPORT INFORMATION
  Report Type: Spontaneous
  Country: US (occurrence: US)
  Receive Date: 20220818
  Receipt Date: 20250918
  Transmission Date: 20251021
  Serious: Yes (Other)
  Sender: PFIZER
  Company Number: US-PFIZER INC-202200631585

PATIENT
  Age: 48 Year
  Sex: Female

DRUGS (11)
  1. IBRANCE [Suspect]
     Active Substance: PALBOCICLIB
     Indication: Breast cancer female
     Route: 048
     Dates: start: 20210423
  2. IBRANCE [Suspect]
     Active Substance: PALBOCICLIB
     Dates: start: 202105
  3. IBRANCE [Suspect]
     Active Substance: PALBOCICLIB
     Route: 048
     Dates: start: 20220817, end: 2022
  4. IBRANCE [Suspect]
     Active Substance: PALBOCICLIB
     Route: 048
     Dates: end: 2023
  5. IBRANCE [Suspect]
     Active Substance: PALBOCICLIB
     Route: 048
  6. AMLODIPINE [Concomitant]
     Active Substance: AMLODIPINE BESYLATE
  7. GABAPENTIN [Concomitant]
     Active Substance: GABAPENTIN
  8. LETROZOLE [Concomitant]
     Active Substance: LETROZOLE
  9. MELATONIN [Concomitant]
     Active Substance: MELATONIN
  10. OXYCODONE [Concomitant]
     Active Substance: OXYCODONE
  11. LUPRON [Concomitant]
     Active Substance: LEUPROLIDE ACETATE

REACTIONS (3)
  - Neutropenia [Unknown]
  - White blood cell count decreased [Not Recovered/Not Resolved]
  - Nasopharyngitis [Unknown]
